FAERS Safety Report 11397889 (Version 1)
Quarter: 2015Q3

REPORT INFORMATION
  Report Type: Spontaneous
  Country: US (occurrence: US)
  Receive Date: 20150819
  Receipt Date: 20150819
  Transmission Date: 20151125
  Serious: Yes (Other)
  Sender: FDA-Public Use
  Company Number: US-BRISTOL-MYERS SQUIBB COMPANY-BMS-2015-053449

PATIENT
  Sex: Male
  Weight: 91 kg

DRUGS (1)
  1. COUMADIN [Suspect]
     Active Substance: WARFARIN SODIUM
     Indication: PRODUCT USED FOR UNKNOWN INDICATION
     Dosage: 5 MG, QD
     Route: 065

REACTIONS (6)
  - Thrombosis [Unknown]
  - Fatigue [Unknown]
  - Treatment noncompliance [Unknown]
  - Intestinal obstruction [Unknown]
  - Surgery [Unknown]
  - Deep vein thrombosis [Unknown]
